FAERS Safety Report 7233287-0 (Version None)
Quarter: 2011Q1

REPORT INFORMATION
  Report Type: 
  Country: None (occurrence: None)
  Receive Date: 20110119
  Receipt Date: 20110112
  Transmission Date: 20110831
  Serious: Yes (Hospitalization, Other)
  Sender: FDA-Public Use
  Company Number: JP-ROCHE-645309

PATIENT
  Sex: Female
  Weight: 41 kg

DRUGS (20)
  1. CELLCEPT [Suspect]
     Route: 048
     Dates: start: 20090523, end: 20090615
  2. TACROLIMUS [Concomitant]
     Route: 048
     Dates: start: 20090307, end: 20090327
  3. SOL-MELCORT [Concomitant]
     Route: 042
     Dates: start: 20090115, end: 20090115
  4. SULFAMETHOXAZOLE AND TRIMETHOPRIM [Concomitant]
     Route: 048
     Dates: start: 20090127, end: 20090409
  5. MEDROL [Concomitant]
     Route: 048
     Dates: start: 20090122, end: 20090219
  6. CELLCEPT [Suspect]
     Route: 048
     Dates: start: 20090112, end: 20090507
  7. TACROLIMUS [Concomitant]
     Dosage: DRUG NAME REPORTED AS GRACEPTOR; GENERIC NAME: TACROLIMUS HYDRATE
     Route: 048
     Dates: start: 20090112, end: 20090120
  8. SOL-MELCORT [Concomitant]
     Route: 042
     Dates: start: 20090116, end: 20090118
  9. CEFAMEZIN [Concomitant]
     Route: 042
     Dates: start: 20090115, end: 20090117
  10. FENTANYL [Concomitant]
     Dosage: ROUTE: INTRAVENOUS (NOT OTHERWISE SPECIFIED)
     Route: 042
     Dates: start: 20090115, end: 20090115
  11. CELLCEPT [Suspect]
     Dosage: DOSE DECREASED
     Route: 048
     Dates: start: 20090508, end: 20090522
  12. TACROLIMUS [Concomitant]
     Route: 048
     Dates: start: 20090221, end: 20090306
  13. MEDROL [Concomitant]
     Route: 048
     Dates: start: 20090220, end: 20090724
  14. TACROLIMUS [Concomitant]
     Route: 048
     Dates: start: 20090328, end: 20090724
  15. SIMULECT [Concomitant]
     Route: 042
     Dates: start: 20090115, end: 20090115
  16. MEDROL [Concomitant]
     Route: 048
     Dates: start: 20090119, end: 20090121
  17. SIMULECT [Concomitant]
     Dosage: DRUG NAME REPORTED AS SIMULECT (BASILIXIMAB(GENETICAL COMBINATION)
     Route: 042
     Dates: start: 20090119, end: 20090119
  18. ULTIVA [Concomitant]
     Route: 042
     Dates: start: 20090115, end: 20090115
  19. TACROLIMUS [Concomitant]
     Route: 048
     Dates: start: 20090121, end: 20090220
  20. PROGRAF [Concomitant]
     Route: 041
     Dates: start: 20090115, end: 20090117

REACTIONS (3)
  - NAUSEA [None]
  - AGRANULOCYTOSIS [None]
  - LOSS OF CONSCIOUSNESS [None]
